FAERS Safety Report 5215641-1 (Version None)
Quarter: 2007Q1

REPORT INFORMATION
  Report Type: 
  Country: None (occurrence: None)
  Receive Date: 20070117
  Receipt Date: 20070111
  Transmission Date: 20070707
  Serious: No
  Sender: FDA-Public Use
  Company Number: S01-FRA-01964-01

PATIENT
  Age: 27 Year
  Sex: Female

DRUGS (2)
  1. SEROPRAM (CITALOPRAM HYDROBROMIDE) [Suspect]
     Indication: DEPRESSION
     Dosage: 20 MG QD PO
     Route: 048
     Dates: start: 20010523
  2. VARNOLINE [Concomitant]

REACTIONS (2)
  - ECCHYMOSIS [None]
  - IRON DEFICIENCY ANAEMIA [None]
